FAERS Safety Report 19565601 (Version 3)
Quarter: 2022Q1

REPORT INFORMATION
  Report Type: Spontaneous
  Country: CA (occurrence: CA)
  Receive Date: 20210714
  Receipt Date: 20220322
  Transmission Date: 20220423
  Serious: Yes (Death, Other)
  Sender: FDA-Public Use
  Company Number: CA-VALIDUS PHARMACEUTICALS LLC-VDP-2021-000048

PATIENT

DRUGS (17)
  1. FUROSEMIDE [Suspect]
     Active Substance: FUROSEMIDE
     Indication: Pulmonary arterial hypertension
     Dosage: UNK
     Route: 042
  2. FUROSEMIDE [Suspect]
     Active Substance: FUROSEMIDE
     Dosage: UNK
     Route: 048
  3. FUROSEMIDE [Suspect]
     Active Substance: FUROSEMIDE
     Dosage: UNK
     Route: 042
  4. FUROSEMIDE [Suspect]
     Active Substance: FUROSEMIDE
     Dosage: 40 MG, BID
     Route: 048
     Dates: start: 2017
  5. FUROSEMIDE [Suspect]
     Active Substance: FUROSEMIDE
     Dosage: UNK MG, BID
     Route: 048
  6. FUROSEMIDE [Suspect]
     Active Substance: FUROSEMIDE
     Dosage: 120 MG, BID
     Route: 048
  7. BOSENTAN [Suspect]
     Active Substance: BOSENTAN
     Indication: Pulmonary arterial hypertension
     Dosage: 250 MILLIGRAM, QD
     Route: 065
     Dates: start: 20190904
  8. MACITENTAN [Suspect]
     Active Substance: MACITENTAN
     Indication: Pulmonary arterial hypertension
     Dosage: 10 MILLIGRAM, QD
     Route: 048
     Dates: start: 2019, end: 2019
  9. MACITENTAN [Suspect]
     Active Substance: MACITENTAN
     Dosage: 20 MILLIGRAM, QD
     Route: 048
  10. CYANOCOBALAMIN [Concomitant]
     Active Substance: CYANOCOBALAMIN
     Indication: Product used for unknown indication
     Dosage: UNK
     Route: 065
  11. GLICLAZIDE [Concomitant]
     Active Substance: GLICLAZIDE
     Indication: Type 2 diabetes mellitus
     Dosage: UNK
     Route: 065
     Dates: start: 2004, end: 2020
  12. JANUVIA [Concomitant]
     Active Substance: SITAGLIPTIN PHOSPHATE
     Indication: Type 2 diabetes mellitus
     Dosage: UNK
     Route: 065
     Dates: start: 2020
  13. LANSOPRAZOLE [Concomitant]
     Active Substance: LANSOPRAZOLE
     Indication: Gastrooesophageal reflux disease
     Dosage: PROLONGED-RELEASE CAPSULE
     Route: 065
  14. METOPROLOL [Concomitant]
     Active Substance: METOPROLOL
     Indication: Pulmonary arterial hypertension
     Dosage: UNK
     Route: 065
     Dates: start: 2017
  15. SILDENAFIL [Concomitant]
     Active Substance: SILDENAFIL
     Indication: Pulmonary arterial hypertension
     Dosage: UNK
     Route: 065
  16. WARFARIN [Concomitant]
     Active Substance: WARFARIN
     Indication: Pulmonary arterial hypertension
     Dosage: UNK
     Route: 065
     Dates: start: 2017, end: 2020
  17. WARFARIN [Concomitant]
     Active Substance: WARFARIN
     Indication: Atrial fibrillation

REACTIONS (35)
  - Death [Fatal]
  - Femur fracture [Fatal]
  - Aspiration pleural cavity [Fatal]
  - Asthenia [Fatal]
  - Cardiac failure congestive [Fatal]
  - Cough [Fatal]
  - Dyspnoea [Fatal]
  - Gait disturbance [Fatal]
  - Gastric varices [Fatal]
  - Gastrointestinal haemorrhage [Fatal]
  - Gastrointestinal vascular malformation haemorrhagic [Fatal]
  - Hypersomnia [Fatal]
  - Lower gastrointestinal haemorrhage [Fatal]
  - Melaena [Fatal]
  - Orthopnoea [Fatal]
  - Peripheral swelling [Fatal]
  - Polyuria [Fatal]
  - Portal hypertensive gastropathy [Fatal]
  - Pulmonary arterial hypertension [Fatal]
  - Rectal haemorrhage [Fatal]
  - Right ventricular dilatation [Fatal]
  - Right ventricular failure [Fatal]
  - Right ventricular systolic pressure decreased [Fatal]
  - Tricuspid valve incompetence [Fatal]
  - Upper gastrointestinal haemorrhage [Fatal]
  - Weight decreased [Fatal]
  - Anaemia [Fatal]
  - Fatigue [Fatal]
  - Hypervolaemia [Fatal]
  - Fluid retention [Fatal]
  - Weight increased [Fatal]
  - Mineral supplementation [Fatal]
  - Packed red blood cell transfusion [Fatal]
  - Therapy non-responder [Fatal]
  - Incorrect dose administered [Fatal]
